FAERS Safety Report 18322220 (Version 1)
Quarter: 2020Q3

REPORT INFORMATION
  Report Type: Spontaneous
  Country: US (occurrence: US)
  Receive Date: 20200928
  Receipt Date: 20200928
  Transmission Date: 20201103
  Serious: Yes (Hospitalization)
  Sender: FDA-Public Use
  Company Number: None

PATIENT
  Age: 73 Year
  Sex: Male

DRUGS (4)
  1. REPATHA [Suspect]
     Active Substance: EVOLOCUMAB
     Indication: HYPERCHOLESTEROLAEMIA
     Dosage: ?          OTHER FREQUENCY:EVERY 2 WEEKS;?
     Route: 058
     Dates: start: 20180517
  2. CLOPIDOGREL TAB75MG [Concomitant]
     Dates: start: 20200409
  3. HYDROCO/APAP TAB 7.5?325 [Concomitant]
     Dates: start: 20200918
  4. DOK CAP 100MG [Concomitant]
     Dates: start: 20200908

REACTIONS (3)
  - Hand fracture [None]
  - Upper limb fracture [None]
  - Fall [None]

NARRATIVE: CASE EVENT DATE: 20200905
